FAERS Safety Report 8909523 (Version 1)
Quarter: 2012Q4

REPORT INFORMATION
  Report Type: 
  Country: US (occurrence: US)
  Receive Date: 20121115
  Receipt Date: 20121115
  Transmission Date: 20130627
  Serious: Yes (Hospitalization)
  Sender: FDA-Public Use
  Company Number: US-BAYER-2012-117979

PATIENT
  Age: 27 Year
  Sex: Female
  Weight: 68.3 kg

DRUGS (8)
  1. YAZ [Suspect]
  2. METRONIDAZOLE [Concomitant]
     Dosage: 500 mg,14 dispensed
  3. FLUCONAZOLE [Concomitant]
     Dosage: 150 mg, 1 dispensed
  4. HYDROXYZINE [Concomitant]
     Dosage: 25 mg, 20 dispensed
  5. ENALAPRIL [Concomitant]
     Indication: HYPERTENSION
  6. HYDROCHLOROTHIAZIDE [Concomitant]
  7. TRAMADOL [Concomitant]
  8. ULTRAM [Concomitant]

REACTIONS (3)
  - Deep vein thrombosis [None]
  - Pelvic venous thrombosis [None]
  - Thrombophlebitis superficial [None]
